FAERS Safety Report 25999994 (Version 1)
Quarter: 2025Q4

REPORT INFORMATION
  Report Type: Spontaneous
  Country: TZ (occurrence: TZ)
  Receive Date: 20251105
  Receipt Date: 20251105
  Transmission Date: 20260118
  Serious: Yes (Life-Threatening, Other)
  Sender: PFIZER
  Company Number: TZ-PFIZER INC-PV202500129214

PATIENT
  Age: 9 Year
  Sex: Female

DRUGS (13)
  1. MEROPENEM [Suspect]
     Active Substance: MEROPENEM
     Indication: Cardiogenic shock
     Dosage: 20 MG/KG, 3X/DAY
     Route: 042
  2. MEROPENEM [Suspect]
     Active Substance: MEROPENEM
     Indication: Sepsis
  3. MEROPENEM [Suspect]
     Active Substance: MEROPENEM
     Indication: Multisystem inflammatory syndrome
  4. MEROPENEM [Suspect]
     Active Substance: MEROPENEM
     Indication: COVID-19
  5. CEFTRIAXONE [Suspect]
     Active Substance: CEFTRIAXONE
     Indication: Myocarditis
     Dosage: 75 MG/KG, DAILY
     Route: 042
  6. CEFTRIAXONE [Suspect]
     Active Substance: CEFTRIAXONE
     Indication: Multisystem inflammatory syndrome
  7. CEFTRIAXONE [Suspect]
     Active Substance: CEFTRIAXONE
     Indication: COVID-19
  8. AMOXICILLIN\CLAVULANIC ACID [Suspect]
     Active Substance: AMOXICILLIN\CLAVULANIC ACID
     Indication: Myocarditis
     Dosage: 625 MG, 2X/DAY
  9. AMOXICILLIN\CLAVULANIC ACID [Suspect]
     Active Substance: AMOXICILLIN\CLAVULANIC ACID
     Indication: Multisystem inflammatory syndrome
  10. AMOXICILLIN\CLAVULANIC ACID [Suspect]
     Active Substance: AMOXICILLIN\CLAVULANIC ACID
     Indication: COVID-19
  11. HUMAN IMMUNOGLOBULIN G [Concomitant]
     Active Substance: HUMAN IMMUNOGLOBULIN G
     Indication: Ejection fraction decreased
     Dosage: 2 G/KG, 2X/DAY
     Route: 042
  12. ASPIRIN [Concomitant]
     Active Substance: ASPIRIN
     Indication: Ejection fraction decreased
     Dosage: 75 MG, DAILY
  13. NOREPINEPHRINE [Concomitant]
     Active Substance: NOREPINEPHRINE
     Indication: Cardiogenic shock
     Dosage: 0.05 MCG/KG/MIN, PERIPHERAL DOSE INFUSION

REACTIONS (2)
  - Drug ineffective for unapproved indication [Recovering/Resolving]
  - Off label use [Unknown]
